FAERS Safety Report 9268337 (Version 1)
Quarter: 2013Q2

REPORT INFORMATION
  Report Type: Spontaneous
  Country: US (occurrence: US)
  Receive Date: 20130502
  Receipt Date: 20130502
  Transmission Date: 20140414
  Serious: No
  Sender: FDA-Public Use
  Company Number: US-ALEXION-A201202034

PATIENT
  Age: 22 Year
  Sex: Female

DRUGS (8)
  1. SOLIRIS 300MG [Suspect]
     Indication: PAROXYSMAL NOCTURNAL HAEMOGLOBINURIA
     Dosage: 900 MG, Q2W
     Route: 042
     Dates: start: 201007
  2. OMEGA 3 [Concomitant]
     Dosage: 300-1000 MG
     Route: 048
  3. NEUPOGEN [Concomitant]
     Indication: NEUTROPENIA
     Dosage: 150 ?G, QD
     Route: 058
  4. NOVOLOG [Concomitant]
     Indication: DIABETES MELLITUS
     Dosage: UNK
     Route: 058
  5. PRENATAL VITAMINS [Concomitant]
     Dosage: 27 MG, UNK
     Route: 048
  6. PROVIGIL [Concomitant]
     Dosage: 100 MG, QD
     Route: 048
  7. VITAMIN C [Concomitant]
     Dosage: UNK, QD
     Route: 048
  8. PACKED RED BLOOD CELLS [Concomitant]
     Dosage: 2 UNITS, Q 3 MONTHS

REACTIONS (1)
  - Biopsy bone marrow [Recovered/Resolved]
